FAERS Safety Report 18827063 (Version 1)
Quarter: 2021Q1

REPORT INFORMATION
  Report Type: Spontaneous
  Country: US (occurrence: US)
  Receive Date: 20210201
  Receipt Date: 20210201
  Transmission Date: 20210419
  Serious: No
  Sender: FDA-Public Use
  Company Number: US-ABBVIE-20K-163-3448072-00

PATIENT

DRUGS (1)
  1. HUMIRA [Suspect]
     Active Substance: ADALIMUMAB
     Indication: PSORIATIC ARTHROPATHY
     Route: 058

REACTIONS (25)
  - Peripheral swelling [Unknown]
  - Therapeutic product effect decreased [Unknown]
  - Weight increased [Unknown]
  - Hypothyroidism [Not Recovered/Not Resolved]
  - Hypertension [Unknown]
  - Alopecia [Recovering/Resolving]
  - Blood thyroid stimulating hormone decreased [Unknown]
  - Depression [Unknown]
  - Blood oestrogen increased [Unknown]
  - Osteoarthritis [Unknown]
  - Arthralgia [Unknown]
  - Constipation [Unknown]
  - Cortisol decreased [Recovering/Resolving]
  - Blood testosterone decreased [Recovering/Resolving]
  - Insomnia [Unknown]
  - Progesterone decreased [Recovering/Resolving]
  - Exostosis [Unknown]
  - Gait inability [Unknown]
  - Illness [Unknown]
  - Anxiety [Unknown]
  - Arrhythmia [Unknown]
  - Cardiac disorder [Unknown]
  - Blood oestrogen decreased [Recovering/Resolving]
  - Heart rate abnormal [Unknown]
  - Fatigue [Unknown]
